FAERS Safety Report 8199444-4 (Version None)
Quarter: 2012Q1

REPORT INFORMATION
  Report Type: 
  Country: None (occurrence: None)
  Receive Date: 20120309
  Receipt Date: 20120305
  Transmission Date: 20120608
  Serious: Yes (Other)
  Sender: FDA-Public Use
  Company Number: US-AMGEN-USASP2012014523

PATIENT

DRUGS (11)
  1. PRAVASTATIN [Concomitant]
  2. GLYBURIDE [Concomitant]
  3. NPLATE [Suspect]
     Indication: IDIOPATHIC THROMBOCYTOPENIC PURPURA
  4. HYDROCODONE BITARTRATE [Concomitant]
  5. AMLODIPINE [Concomitant]
  6. PREDNISONE [Concomitant]
  7. NYSTATIN [Concomitant]
  8. MAGNESIUM OXIDE [Concomitant]
  9. PRILOSEC [Concomitant]
  10. METFORMIN HYDROCHLORIDE [Concomitant]
  11. DITROPAN [Concomitant]

REACTIONS (2)
  - HICCUPS [None]
  - ANGIOEDEMA [None]
